FAERS Safety Report 5457327-4 (Version None)
Quarter: 2007Q3

REPORT INFORMATION
  Report Type: 
  Country: None (occurrence: None)
  Receive Date: 20070918
  Receipt Date: 20070910
  Transmission Date: 20080115
  Serious: Yes (Other)
  Sender: FDA-Public Use
  Company Number: FR-PFIZER INC-2007063726

PATIENT
  Sex: Female

DRUGS (1)
  1. CHAMPIX [Suspect]
     Dates: start: 20070501, end: 20070701

REACTIONS (2)
  - ASCITES [None]
  - PANCREATITIS ACUTE [None]
